FAERS Safety Report 21708247 (Version 1)
Quarter: 2022Q4

REPORT INFORMATION
  Report Type: Spontaneous
  Country: JP (occurrence: JP)
  Receive Date: 20221210
  Receipt Date: 20221210
  Transmission Date: 20230112
  Serious: Yes (Hospitalization, Other)
  Sender: FDA-Public Use
  Company Number: JP-ONO-2022JP032822

PATIENT
  Age: 51 Year
  Sex: Male

DRUGS (1)
  1. OPDIVO [Suspect]
     Active Substance: NIVOLUMAB
     Indication: Transitional cell carcinoma
     Dosage: 240 MG, Q2W
     Route: 041
     Dates: start: 20220513, end: 20220603

REACTIONS (4)
  - Pneumothorax [Unknown]
  - Immune-mediated encephalitis [Recovered/Resolved]
  - Immune-mediated enterocolitis [Recovering/Resolving]
  - Immune-mediated lung disease [Unknown]

NARRATIVE: CASE EVENT DATE: 20220621
